FAERS Safety Report 20159892 (Version 4)
Quarter: 2022Q1

REPORT INFORMATION
  Report Type: Spontaneous
  Country: PL (occurrence: PL)
  Receive Date: 20211208
  Receipt Date: 20220216
  Transmission Date: 20220424
  Serious: Yes (Other)
  Sender: FDA-Public Use
  Company Number: PL-NOVARTISPH-NVSC2021PL275650

PATIENT
  Sex: Female

DRUGS (1)
  1. EVEROLIMUS [Suspect]
     Active Substance: EVEROLIMUS
     Indication: Product used for unknown indication
     Dosage: UNK UNK, TIW (MAINTENANCE DOSE)
     Route: 065

REACTIONS (12)
  - Seizure [Unknown]
  - Status epilepticus [Unknown]
  - Sepsis [Unknown]
  - Aphthous ulcer [Unknown]
  - Dermatitis [Unknown]
  - Menstrual disorder [Unknown]
  - Blood cholesterol increased [Unknown]
  - Blood disorder [Unknown]
  - Respiratory tract infection [Unknown]
  - Infection [Unknown]
  - Maternal exposure during pregnancy [Unknown]
  - Inappropriate schedule of product administration [Unknown]
